FAERS Safety Report 20130458 (Version 3)
Quarter: 2021Q4

REPORT INFORMATION
  Report Type: Report from Study
  Country: CA (occurrence: CA)
  Receive Date: 20211130
  Receipt Date: 20211213
  Transmission Date: 20220304
  Serious: Yes (Hospitalization)
  Sender: FDA-Public Use
  Company Number: CA-ABBVIE-21K-028-4178666-00

PATIENT
  Sex: Female

DRUGS (2)
  1. RINVOQ [Suspect]
     Active Substance: UPADACITINIB
     Indication: Rheumatoid arthritis
     Route: 048
     Dates: start: 20210805, end: 2021
  2. OXYGEN [Concomitant]
     Active Substance: OXYGEN
     Indication: Product used for unknown indication

REACTIONS (13)
  - Lung disorder [Unknown]
  - Illness [Unknown]
  - Hot flush [Recovered/Resolved]
  - Malaise [Unknown]
  - Asthenia [Unknown]
  - Depression [Recovered/Resolved]
  - Immunosuppression [Unknown]
  - Pain [Unknown]
  - Night sweats [Recovered/Resolved]
  - Polychondritis [Unknown]
  - Respiratory disorder [Unknown]
  - Disease susceptibility [Unknown]
  - Fatigue [Unknown]

NARRATIVE: CASE EVENT DATE: 20210101
